FAERS Safety Report 7888236 (Version 2)
Quarter: 2012Q4

REPORT INFORMATION
  Report Type: Spontaneous
  Country: US (occurrence: None)
  Receive Date: 20110315
  Receipt Date: 20121022
  Transmission Date: 20130627
  Serious: Yes (Other)
  Sender: FDA-Public Use
  Company Number: 2011MA001994

PATIENT
  Sex: Female
  Weight: 90.72 kg

DRUGS (43)
  1. METOCLOPRAMIDE [Suspect]
     Indication: ACID REFLUX
     Route: 048
     Dates: start: 20040820, end: 20100710
  2. METOCLOPRAMIDE [Suspect]
     Indication: NAUSEA
     Route: 048
     Dates: start: 20040820, end: 20100710
  3. ALBUTEROL [Concomitant]
  4. ALPRAZOLAM [Concomitant]
  5. AMOXICILLIN [Concomitant]
  6. AZITHROMYCIN [Concomitant]
  7. CEPHALEXIN [Concomitant]
  8. CHANTIX [Concomitant]
  9. CIPROFLOXIN [Concomitant]
  10. CLONAZEPAM [Concomitant]
  11. CODEINE [Concomitant]
  12. CRESTOR [Concomitant]
  13. CYCLOBENZAPRINE [Concomitant]
  14. DOXEPIN [Concomitant]
  15. FLUCONAZOLE [Concomitant]
  16. FLUOXETINE [Concomitant]
  17. GEMFIBROZIL [Concomitant]
  18. HUMALOG [Concomitant]
  19. HYDROCODONE W/APAP [Concomitant]
  20. HYOSCYAMINE [Concomitant]
  21. IBUPROFEN [Concomitant]
  22. LANTUS [Concomitant]
  23. LEVAQUIN [Concomitant]
  24. LEXAPRO [Concomitant]
  25. LIPITOR [Concomitant]
  26. METHADONE [Concomitant]
  27. METHYLPREDNISONE [Concomitant]
  28. NOVOLOG [Concomitant]
  29. OMEPRAZOLE [Concomitant]
  30. ONDANSETRON [Concomitant]
  31. ORPHENADRINE CITRATE [Concomitant]
  32. PHENAZOPYRIDINE [Concomitant]
  33. PHENYTOIN SODIUM [Concomitant]
  34. PREMARIN [Concomitant]
  35. PROMETHAZINE [Concomitant]
  36. SULFAMETH/ TRIMETHOPRIM [Concomitant]
  37. TORSEMIDE [Concomitant]
  38. TRAMADOL [Concomitant]
  39. TRAZODONE [Concomitant]
  40. TRIAZOLAM [Concomitant]
  41. WARFARIN [Concomitant]
  42. ZETIA [Concomitant]
  43. ZOLPIDEM [Concomitant]

REACTIONS (3)
  - Tardive dyskinesia [None]
  - Emotional disorder [None]
  - Economic problem [None]
